FAERS Safety Report 9510537 (Version 1)
Quarter: 2013Q3

REPORT INFORMATION
  Report Type: Report from Study
  Country: BR (occurrence: BR)
  Receive Date: 20130909
  Receipt Date: 20130909
  Transmission Date: 20140515
  Serious: Yes (Other)
  Sender: FDA-Public Use
  Company Number: PHHY2013BR096446

PATIENT
  Age: 77 Year
  Sex: Male

DRUGS (6)
  1. ONBREZ [Suspect]
     Indication: ASTHMA
     Dosage: 150 UG, BID
  2. ONBREZ [Suspect]
     Indication: OFF LABEL USE
     Dosage: 150 UG, QD
  3. ONBREZ [Suspect]
     Dosage: 300 UG, QD
  4. GALVUS MET [Suspect]
     Indication: DIABETES MELLITUS
     Dosage: 1 DF, UNK
     Route: 048
  5. DOXAZOSIN [Concomitant]
     Indication: PROSTATOMEGALY
     Dosage: 4 MG, DAILY
     Route: 048
  6. AEROLIN [Concomitant]
     Indication: BRONCHITIS
     Dosage: TWO OR THREE TIMES A DAY

REACTIONS (3)
  - Arrhythmia [Recovering/Resolving]
  - Syncope [Recovering/Resolving]
  - Inappropriate schedule of drug administration [Unknown]
